FAERS Safety Report 19142441 (Version 4)
Quarter: 2021Q2

REPORT INFORMATION
  Report Type: Spontaneous
  Country: JP (occurrence: JP)
  Receive Date: 20210415
  Receipt Date: 20210625
  Transmission Date: 20210717
  Serious: Yes (Other)
  Sender: FDA-Public Use
  Company Number: JP-PFIZER INC-2021402322

PATIENT
  Sex: Male

DRUGS (6)
  1. CETUXIMAB. [Suspect]
     Active Substance: CETUXIMAB
     Dosage: UNK
     Route: 065
  2. BRAFTOVI [Suspect]
     Active Substance: ENCORAFENIB
     Indication: COLON CANCER
     Dosage: UNK
     Route: 048
  3. MEKTOVI [Suspect]
     Active Substance: BINIMETINIB
     Indication: COLON CANCER
     Dosage: UNK
     Route: 048
  4. CETUXIMAB. [Suspect]
     Active Substance: CETUXIMAB
     Indication: COLON CANCER
     Dosage: UNK
     Route: 065
  5. BRAFTOVI [Suspect]
     Active Substance: ENCORAFENIB
     Dosage: UNK
     Route: 048
  6. MEKTOVI [Suspect]
     Active Substance: BINIMETINIB
     Dosage: UNK
     Route: 048

REACTIONS (7)
  - Decreased appetite [Recovered/Resolved]
  - Enteritis infectious [Unknown]
  - Visual acuity reduced [Recovering/Resolving]
  - Pyrexia [Recovered/Resolved]
  - Infusion related reaction [Unknown]
  - Diarrhoea [Recovered/Resolved]
  - Vision blurred [Recovering/Resolving]

NARRATIVE: CASE EVENT DATE: 202103
